FAERS Safety Report 4803146-9 (Version None)
Quarter: 2005Q4

REPORT INFORMATION
  Report Type: 
  Country: None (occurrence: None)
  Receive Date: 20051019
  Receipt Date: 20050505
  Transmission Date: 20060501
  Serious: Yes (Hospitalization, Disabling)
  Sender: FDA-Public Use
  Company Number: US-MERCK-0505USA00781

PATIENT
  Age: 60 Year
  Sex: Male
  Weight: 68 kg

DRUGS (2)
  1. VIOXX [Suspect]
     Indication: BACK PAIN
     Route: 048
     Dates: start: 20011025, end: 20020219
  2. CELEBREX [Concomitant]
     Route: 065

REACTIONS (9)
  - CARDIAC FAILURE CONGESTIVE [None]
  - CEREBRAL INFARCTION [None]
  - CORONARY ARTERY DISEASE [None]
  - EMOTIONAL DISORDER [None]
  - INTERVERTEBRAL DISC PROTRUSION [None]
  - ISCHAEMIC CARDIOMYOPATHY [None]
  - LACUNAR INFARCTION [None]
  - MYOCARDIAL INFARCTION [None]
  - PNEUMONITIS [None]
